FAERS Safety Report 21064199 (Version 4)
Quarter: 2022Q3

REPORT INFORMATION
  Report Type: Spontaneous
  Country: CO (occurrence: CO)
  Receive Date: 20220711
  Receipt Date: 20220929
  Transmission Date: 20221027
  Serious: No
  Sender: FDA-Public Use
  Company Number: CO-PFIZER INC-202200889276

PATIENT
  Sex: Female

DRUGS (1)
  1. GENOTROPIN [Suspect]
     Active Substance: SOMATROPIN
     Dosage: 0.9 MG, UNSPECIFIED FREQUENCY
     Route: 058
     Dates: start: 2017

REACTIONS (4)
  - Wrong technique in device usage process [Unknown]
  - Device failure [Unknown]
  - Device leakage [Unknown]
  - Expired device used [Unknown]
